FAERS Safety Report 15034355 (Version 1)
Quarter: 2018Q2

REPORT INFORMATION
  Report Type: Spontaneous
  Country: GB (occurrence: GB)
  Receive Date: 20180620
  Receipt Date: 20180620
  Transmission Date: 20180711
  Serious: Yes (Other)
  Sender: FDA-Public Use
  Company Number: GB-TEVA-2018-GB-910289

PATIENT
  Age: 45 Year
  Sex: Male
  Weight: 102 kg

DRUGS (1)
  1. RAMIPRIL. [Suspect]
     Active Substance: RAMIPRIL
     Indication: HYPERTENSION
     Route: 048
     Dates: start: 20180424, end: 20180429

REACTIONS (1)
  - Hiccups [Recovered/Resolved]

NARRATIVE: CASE EVENT DATE: 20180425
